FAERS Safety Report 6302840-0 (Version None)
Quarter: 2009Q3

REPORT INFORMATION
  Report Type: 
  Country: None (occurrence: None)
  Receive Date: 20090810
  Receipt Date: 20090803
  Transmission Date: 20100115
  Serious: Yes (Disabling)
  Sender: FDA-Public Use
  Company Number: US-KINGPHARMUSA00001-K200900918

PATIENT
  Age: 38 Year
  Sex: Female

DRUGS (6)
  1. ALTACE [Suspect]
     Indication: HYPERTENSION
     Dosage: 2.5 MG, QD
     Route: 048
     Dates: start: 20090422
  2. CLOPIDOGREL SULFATE [Concomitant]
     Indication: THROMBOSIS PROPHYLAXIS
     Dosage: 75 MG, UNK
     Route: 048
     Dates: start: 20050101
  3. ATENOLOL [Concomitant]
     Indication: HYPERTENSION
     Dosage: UNK
     Route: 048
     Dates: start: 20050101
  4. ATORVASTATIN CALCIUM [Concomitant]
     Indication: HYPERCHOLESTEROLAEMIA
     Dosage: 10 MG, UNK
     Route: 048
     Dates: start: 20050101
  5. ZOFENOPRIL [Concomitant]
     Indication: HYPERTENSION
     Dosage: 7.5 MG, UNK
     Route: 048
     Dates: start: 20070101, end: 20090421
  6. TERBINAFINE HYDROCHLORIDE [Concomitant]
     Indication: ONYCHOMYCOSIS
     Route: 061

REACTIONS (5)
  - ANXIETY [None]
  - BALANCE DISORDER [None]
  - DIZZINESS [None]
  - HEADACHE [None]
  - SOMNOLENCE [None]
